FAERS Safety Report 7462828-3 (Version None)
Quarter: 2011Q1

REPORT INFORMATION
  Report Type: 
  Country: None (occurrence: None)
  Receive Date: 20110302
  Receipt Date: 20101220
  Transmission Date: 20110831
  Serious: Yes (Other)
  Sender: FDA-Public Use
  Company Number: 163-21880-10111666

PATIENT
  Age: 74 Year
  Sex: Male

DRUGS (5)
  1. REVLIMID [Suspect]
  2. GAMMA GLOBULIN (IMMUNOGLOBULIN HUMAN NORMAL) [Concomitant]
  3. DEXAMETHASONE [Concomitant]
  4. REVLIMID [Suspect]
     Indication: MANTLE CELL LYMPHOMA
     Dosage: 25 MG, PO, 15 MG, PO, 5 MG, 1 IN 1 D, PO
     Route: 048
     Dates: start: 20100219
  5. AUGMENTIN '125' [Concomitant]

REACTIONS (5)
  - CONJUNCTIVAL DISORDER [None]
  - NEUTROPENIA [None]
  - CATARACT [None]
  - PANCYTOPENIA [None]
  - RASH PRURITIC [None]
